FAERS Safety Report 15490998 (Version 1)
Quarter: 2018Q4

REPORT INFORMATION
  Report Type: Spontaneous
  Country: US (occurrence: US)
  Receive Date: 20181012
  Receipt Date: 20181012
  Transmission Date: 20190205
  Serious: No
  Sender: FDA-Public Use
  Company Number: US-BION-007009

PATIENT
  Sex: Female

DRUGS (1)
  1. PROGESTERONE BIONPHARMA [Suspect]
     Active Substance: PROGESTERONE
     Indication: PRODUCT USED FOR UNKNOWN INDICATION
     Dosage: STRENGTH: 100 MG
     Dates: start: 20170412

REACTIONS (2)
  - Product substitution issue [Unknown]
  - Headache [Recovered/Resolved]
